FAERS Safety Report 4950194-4 (Version None)
Quarter: 2006Q1

REPORT INFORMATION
  Report Type: 
  Country: None (occurrence: None)
  Receive Date: 20060322
  Receipt Date: 20060314
  Transmission Date: 20060701
  Serious: Yes (Hospitalization, Disabling, Congenital Anomaly)
  Sender: FDA-Public Use
  Company Number: 2006SE01479

PATIENT
  Age: 6 Day
  Sex: Male
  Weight: 2.8 kg

DRUGS (3)
  1. BLOPRESS TABLETS 8 [Suspect]
     Route: 064
     Dates: start: 20050601, end: 20051228
  2. DEPAKENE [Concomitant]
     Route: 064
  3. CYANOCOBALAMIN [Concomitant]
     Route: 064

REACTIONS (3)
  - DRUG EXPOSURE DURING PREGNANCY [None]
  - OSTEOGENESIS IMPERFECTA [None]
  - PREMATURE BABY [None]
